FAERS Safety Report 20804950 (Version 6)
Quarter: 2023Q2

REPORT INFORMATION
  Report Type: Spontaneous
  Country: US (occurrence: US)
  Receive Date: 20220509
  Receipt Date: 20230508
  Transmission Date: 20230721
  Serious: No
  Sender: FDA-Public Use
  Company Number: US-PFIZER INC-202200301261

PATIENT
  Age: 53 Year
  Sex: Female
  Weight: 68.1 kg

DRUGS (4)
  1. PREMARIN [Suspect]
     Active Substance: ESTROGENS, CONJUGATED
     Dosage: UNK
  2. PREMARIN [Suspect]
     Active Substance: ESTROGENS, CONJUGATED
     Dosage: 1.25 MG, DAILY
     Route: 048
     Dates: start: 20221121
  3. ESTRADIOL [Suspect]
     Active Substance: ESTRADIOL
     Dosage: UNK
  4. NEURONTIN [Concomitant]
     Active Substance: GABAPENTIN
     Dosage: TAKE 1 (ONE), TABLET (800 MG TOTAL) BY MOUTH 3 (THREE) TIMES A DAY AS NEEDED
     Route: 048
     Dates: start: 20201222

REACTIONS (5)
  - Hot flush [Unknown]
  - Vulvovaginal dryness [Unknown]
  - Weight increased [Unknown]
  - Breast enlargement [Unknown]
  - Stress urinary incontinence [Unknown]
